FAERS Safety Report 18486335 (Version 1)
Quarter: 2020Q4

REPORT INFORMATION
  Report Type: Spontaneous
  Country: DE (occurrence: DE)
  Receive Date: 20201110
  Receipt Date: 20201110
  Transmission Date: 20210114
  Serious: Yes (Hospitalization)
  Sender: FDA-Public Use
  Company Number: DE-TEVA-2020-DE-1846237

PATIENT
  Age: 76 Year
  Sex: Female

DRUGS (2)
  1. DECITABIN [Concomitant]
     Dosage: BREAK
  2. TORASEMID [Suspect]
     Active Substance: TORSEMIDE
     Dosage: 10 MILLIGRAM DAILY;  1-0-0-0

REACTIONS (7)
  - Condition aggravated [Unknown]
  - Pain [Unknown]
  - Dyspnoea [Unknown]
  - General physical health deterioration [Unknown]
  - Pyrexia [Unknown]
  - Upper respiratory tract irritation [Unknown]
  - Dysuria [Unknown]
